FAERS Safety Report 19630943 (Version 22)
Quarter: 2022Q2

REPORT INFORMATION
  Report Type: Report from Study
  Country: CN (occurrence: None)
  Receive Date: 20210729
  Receipt Date: 20220405
  Transmission Date: 20220721
  Serious: Yes (Hospitalization)
  Sender: FDA-Public Use
  Company Number: CN-EISAI MEDICAL RESEARCH-EC-2021-096911

PATIENT
  Age: 66 Year
  Sex: Male
  Weight: 78 kg

DRUGS (17)
  1. LENVATINIB [Suspect]
     Active Substance: LENVATINIB
     Indication: Non-small cell lung cancer metastatic
     Route: 048
     Dates: start: 20200619, end: 20210720
  2. PEMBROLIZUMAB [Suspect]
     Active Substance: PEMBROLIZUMAB
     Indication: Non-small cell lung cancer metastatic
     Dosage: UP TO 35 CYCLES
     Route: 041
     Dates: start: 20200619, end: 20210609
  3. PEMBROLIZUMAB [Suspect]
     Active Substance: PEMBROLIZUMAB
     Dosage: UP TO 35 CYCLES
     Route: 041
     Dates: start: 20210630, end: 20210630
  4. PEMETREXED [Suspect]
     Active Substance: PEMETREXED
     Indication: Non-small cell lung cancer metastatic
     Dosage: POSSIBILITY OF MAINTENANCE THERAPY UNTIL REACHING DISCONTINUATION CRITERIA
     Route: 041
     Dates: start: 20200619, end: 20210609
  5. PEMETREXED [Suspect]
     Active Substance: PEMETREXED
     Dosage: POSSIBILITY OF MAINTENANCE THERAPY UNTIL REACHING DISCONTINUATION CRITERIA
     Route: 041
     Dates: start: 20210630, end: 20210630
  6. PEMETREXED [Suspect]
     Active Substance: PEMETREXED
     Dosage: POSSIBILITY OF MAINTENANCE THERAPY UNTIL REACHING DISCONTINUATION CRITERIA
     Route: 041
     Dates: start: 20210916
  7. CARBOPLATIN [Concomitant]
     Active Substance: CARBOPLATIN
     Indication: Non-small cell lung cancer metastatic
     Dates: start: 20200619, end: 20200820
  8. MINERALS\VITAMINS [Concomitant]
     Active Substance: MINERALS\VITAMINS
     Dates: start: 20200601
  9. AMLODIPINE BESYLATE [Concomitant]
     Active Substance: AMLODIPINE BESYLATE
     Dates: start: 20201228
  10. BICYCLOL [Concomitant]
     Active Substance: BICYCLOL
     Dates: start: 20210610, end: 20210712
  11. DEXTROSE [Concomitant]
     Active Substance: DEXTROSE
     Dates: start: 20210629, end: 20210629
  12. SODIUM CHLORIDE [Concomitant]
     Active Substance: SODIUM CHLORIDE
     Dates: start: 20210629, end: 20210630
  13. CYANOCOBALAMIN [Concomitant]
     Active Substance: CYANOCOBALAMIN
     Dates: start: 20210630, end: 20210630
  14. METOCLOPRAMIDE [Concomitant]
     Active Substance: METOCLOPRAMIDE
     Dates: start: 20210630, end: 20210630
  15. PALONOSETRON HYDROCHLORIDE [Concomitant]
     Active Substance: PALONOSETRON HYDROCHLORIDE
     Dates: start: 20210630, end: 20210630
  16. ALMAGATE [Concomitant]
     Active Substance: ALMAGATE
     Dates: start: 20210629, end: 20210731
  17. DEXAMETHASONE [Concomitant]
     Active Substance: DEXAMETHASONE
     Dates: start: 20210629, end: 20210701

REACTIONS (2)
  - Osteomyelitis [Recovered/Resolved with Sequelae]
  - Pneumonitis [Recovering/Resolving]

NARRATIVE: CASE EVENT DATE: 20210703
